FAERS Safety Report 4308674-0 (Version None)
Quarter: 2004Q1

REPORT INFORMATION
  Report Type: 
  Country: None (occurrence: None)
  Receive Date: 20040301
  Receipt Date: 20040301
  Transmission Date: 20041129
  Serious: Yes (Other)
  Sender: FDA-Public Use
  Company Number: None

PATIENT
  Age: 58 Year
  Sex: Female
  Weight: 55.3388 kg

DRUGS (1)
  1. ZYRTEC [Suspect]
     Indication: RHINITIS
     Dosage: ONCE DAY ORAL
     Route: 048
     Dates: start: 20030923, end: 20031002

REACTIONS (2)
  - INSOMNIA [None]
  - PHARMACEUTICAL PRODUCT COMPLAINT [None]
